FAERS Safety Report 25286277 (Version 1)
Quarter: 2025Q2

REPORT INFORMATION
  Report Type: Spontaneous
  Country: US (occurrence: US)
  Receive Date: 20250509
  Receipt Date: 20250509
  Transmission Date: 20250716
  Serious: No
  Sender: TAKEDA
  Company Number: US-TAKEDA-2025TUS043876

PATIENT
  Sex: Female
  Weight: 62 kg

DRUGS (4)
  1. MOTEGRITY [Suspect]
     Active Substance: PRUCALOPRIDE SUCCINATE
     Indication: Gastrointestinal motility disorder
     Dosage: 2 MILLIGRAM, QD
     Dates: start: 20250504
  2. MOTEGRITY [Suspect]
     Active Substance: PRUCALOPRIDE SUCCINATE
     Indication: Constipation
  3. ERRIN [Concomitant]
     Active Substance: NORETHINDRONE
     Indication: Oral contraception
  4. TRAZODONE [Concomitant]
     Active Substance: TRAZODONE HYDROCHLORIDE

REACTIONS (5)
  - Product use issue [Unknown]
  - Pruritus [Unknown]
  - Erythema [Unknown]
  - Flushing [Unknown]
  - Feeling hot [Unknown]
